FAERS Safety Report 6897651-1 (Version None)
Quarter: 2010Q3

REPORT INFORMATION
  Report Type: 
  Country: None (occurrence: None)
  Receive Date: 20100802
  Receipt Date: 20070626
  Transmission Date: 20110219
  Serious: No
  Sender: FDA-Public Use
  Company Number: US-PFIZER INC-2007051231

PATIENT
  Sex: Female
  Weight: 81.6 kg

DRUGS (8)
  1. LYRICA [Suspect]
     Indication: HERPES ZOSTER
     Dates: start: 20070608
  2. LYRICA [Suspect]
     Indication: POST HERPETIC NEURALGIA
  3. ATENOLOL [Concomitant]
  4. MINOXIDIL [Concomitant]
  5. COZAAR [Concomitant]
  6. PREDNISONE [Concomitant]
  7. GLYBURIDE [Concomitant]
  8. INSULIN [Concomitant]

REACTIONS (2)
  - DRUG INEFFECTIVE [None]
  - HYPOAESTHESIA [None]
